FAERS Safety Report 8889171 (Version 3)
Quarter: 2012Q4

REPORT INFORMATION
  Report Type: Report from Study
  Country: FR (occurrence: FR)
  Receive Date: 20121106
  Receipt Date: 20121126
  Transmission Date: 20130627
  Serious: Yes (Hospitalization)
  Sender: FDA-Public Use
  Company Number: FR-ROCHE-1150276

PATIENT
  Age: 72 Year
  Sex: Male

DRUGS (14)
  1. RITUXIMAB [Suspect]
     Indication: MALIGNANT LYMPHOID NEOPLASM
     Route: 042
     Dates: start: 20121105
  2. RITUXIMAB [Suspect]
     Route: 042
     Dates: start: 20121002
  3. BENDAMUSTINE [Suspect]
     Indication: MALIGNANT LYMPHOID NEOPLASM
     Dosage: D1, D2, 185 mg per cycle
     Route: 041
     Dates: start: 20121002, end: 20121003
  4. BENDAMUSTINE [Suspect]
     Route: 041
     Dates: start: 20121105
  5. BORTEZOMIB [Suspect]
     Indication: MALIGNANT LYMPHOID NEOPLASM
     Dosage: D1, D4,D8 cycle
     Route: 058
     Dates: start: 20121002, end: 20121009
  6. BORTEZOMIB [Suspect]
     Dosage: on day 4  half the dose was given
     Route: 058
     Dates: start: 20121105
  7. DEXAMETHASONE [Suspect]
     Indication: MALIGNANT LYMPHOID NEOPLASM
     Dosage: 1 time per one cycle
     Route: 042
     Dates: start: 20121002
  8. DEXAMETHASONE [Suspect]
     Route: 042
     Dates: start: 20121105
  9. TAHOR [Concomitant]
     Indication: HYPERCHOLESTEROLAEMIA
     Route: 048
  10. NITRENDIPINE [Concomitant]
     Indication: HYPERTENSION
     Route: 048
  11. ZELITREX [Concomitant]
     Indication: INFECTION PROPHYLAXIS
     Route: 048
     Dates: start: 20121002
  12. SYMBICORT [Concomitant]
     Indication: ASTHMA
     Route: 048
  13. ORACILLINE [Concomitant]
     Indication: INFECTION PROPHYLAXIS
     Route: 048
     Dates: start: 20121009, end: 20121014
  14. PERFALGAN [Concomitant]

REACTIONS (4)
  - Pneumonia bacterial [Recovered/Resolved]
  - Viral infection [Recovered/Resolved]
  - Bacterial infection [Recovered/Resolved]
  - Immunosuppression [Recovered/Resolved]
